FAERS Safety Report 8646901 (Version 2)
Quarter: 2013Q1

REPORT INFORMATION
  Report Type: Spontaneous
  Country: US (occurrence: US)
  Receive Date: 20120703
  Receipt Date: 20130128
  Transmission Date: 20140127
  Serious: Yes (Hospitalization, Disabling)
  Sender: FDA-Public Use
  Company Number: US-BAYER-2012-063770

PATIENT
  Age: 25 Year
  Sex: Female
  Weight: 95.24 kg

DRUGS (7)
  1. YAZ [Suspect]
     Indication: POLYCYSTIC OVARIES
     Dosage: UNK
     Dates: start: 20070201, end: 200905
  2. GIANVI [Suspect]
     Indication: POLYCYSTIC OVARIES
     Dosage: UNK
     Dates: start: 20110711, end: 20120210
  3. IBUPROFEN [Concomitant]
  4. THYROID PREPARATIONS [Concomitant]
  5. ANTIBIOTICS [Concomitant]
  6. VITAMIN C [Concomitant]
  7. DARVOCET [Concomitant]

REACTIONS (9)
  - Gallbladder disorder [None]
  - Cholecystitis acute [None]
  - Off label use [None]
  - Injury [None]
  - Pain [None]
  - Deformity [None]
  - Anxiety [None]
  - Anhedonia [None]
  - Discomfort [None]
